FAERS Safety Report 9424236 (Version 1)
Quarter: 2013Q3

REPORT INFORMATION
  Report Type: Spontaneous
  Country: FR (occurrence: FR)
  Receive Date: 20130729
  Receipt Date: 20130729
  Transmission Date: 20140515
  Serious: Yes (Hospitalization)
  Sender: FDA-Public Use
  Company Number: FR-JNJFOC-20130710779

PATIENT
  Age: 73 Year
  Sex: Male

DRUGS (9)
  1. DUROGESIC [Suspect]
     Indication: PAIN
     Route: 062
     Dates: start: 20130603, end: 20130604
  2. IMOVANE [Concomitant]
     Route: 065
  3. COUMADINE [Concomitant]
     Route: 065
  4. CORDARONE [Concomitant]
     Route: 065
  5. CRESTOR [Concomitant]
     Route: 065
  6. MICARDIS [Concomitant]
     Route: 065
  7. TEMERIT [Concomitant]
     Route: 065
  8. ALLOPURINOL [Concomitant]
     Route: 065
  9. VALERIAN (ROOT) [Concomitant]
     Route: 065

REACTIONS (7)
  - Fall [Recovered/Resolved]
  - Confusional state [Recovered/Resolved]
  - Urinary retention [Recovered/Resolved]
  - Hypotension [Unknown]
  - Bradycardia [Unknown]
  - Miosis [Unknown]
  - Hypoaesthesia [Unknown]
